FAERS Safety Report 12391497 (Version 1)
Quarter: 2016Q2

REPORT INFORMATION
  Report Type: Spontaneous
  Country: GB (occurrence: GB)
  Receive Date: 20160521
  Receipt Date: 20160521
  Transmission Date: 20160815
  Serious: Yes (Disabling, Other)
  Sender: FDA-Public Use
  Company Number: GB-ACCORD-040612

PATIENT
  Age: 63 Year
  Sex: Female
  Weight: 63.5 kg

DRUGS (15)
  1. ANASTROZOLE. [Suspect]
     Active Substance: ANASTROZOLE
     Indication: ADJUVANT THERAPY
     Route: 048
     Dates: start: 201111
  2. CHONDROITIN SULFATE/GLUCOSAMINE [Concomitant]
  3. ROSE HIP [Concomitant]
  4. OMEGA-3 FISH OIL [Concomitant]
     Active Substance: FISH OIL\OMEGA-3 FATTY ACIDS
  5. VITAMIN B COMPOUND [Concomitant]
  6. COCODAMOL [Concomitant]
     Active Substance: ACETAMINOPHEN\CODEINE PHOSPHATE
  7. IBUPROFEN. [Concomitant]
     Active Substance: IBUPROFEN
  8. PRAVASTATIN [Concomitant]
     Active Substance: PRAVASTATIN\PRAVASTATIN SODIUM
     Dates: end: 201601
  9. COENZYME Q10 [Concomitant]
     Active Substance: UBIDECARENONE
  10. NAPROXEN/NAPROXEN AMINOBUTANOL/NAPROXEN SODIUM [Concomitant]
  11. CALCIUM CARBONATE/CALCIUM LACTOGLUCONATE [Concomitant]
     Dates: end: 201601
  12. LETROZOLE. [Suspect]
     Active Substance: LETROZOLE
     Indication: BREAST CANCER
     Route: 048
     Dates: start: 201305, end: 201512
  13. ACTONEL [Concomitant]
     Active Substance: RISEDRONATE SODIUM
     Dates: end: 201601
  14. PARACETAMOL [Concomitant]
     Active Substance: ACETAMINOPHEN
  15. ERGOCALCIFEROL. [Concomitant]
     Active Substance: ERGOCALCIFEROL
     Dates: end: 201601

REACTIONS (3)
  - Osteoarthritis [Not Recovered/Not Resolved]
  - Myalgia [Unknown]
  - Neuralgia [Unknown]

NARRATIVE: CASE EVENT DATE: 201211
